FAERS Safety Report 7207480-7 (Version None)
Quarter: 2010Q4

REPORT INFORMATION
  Report Type: 
  Country: None (occurrence: None)
  Receive Date: 20101220
  Receipt Date: 20101129
  Transmission Date: 20110411
  Serious: Yes (Hospitalization, Disabling)
  Sender: FDA-Public Use
  Company Number: PD-137

PATIENT
  Age: 48 Year
  Sex: Female

DRUGS (4)
  1. RANITIDINE [Suspect]
     Indication: DYSURIA
     Dosage: 300 MG ORALLY
     Route: 048
  2. RANITIDINE [Suspect]
     Indication: PYREXIA
     Dosage: 300 MG ORALLY
     Route: 048
  3. IBUPROFEN [Concomitant]
  4. CIPROFLOXACIN [Concomitant]

REACTIONS (4)
  - DEAFNESS NEUROSENSORY [None]
  - MENINGITIS ASEPTIC [None]
  - TINNITUS [None]
  - VESTIBULAR DISORDER [None]
